FAERS Safety Report 22007105 (Version 1)
Quarter: 2023Q1

REPORT INFORMATION
  Report Type: Spontaneous
  Country: DE (occurrence: DE)
  Receive Date: 20230217
  Receipt Date: 20230217
  Transmission Date: 20230418
  Serious: Yes (Life-Threatening, Other)
  Sender: FDA-Public Use
  Company Number: DE-DCGMA-23200290

PATIENT
  Age: 34 Year
  Sex: Female
  Weight: 60 kg

DRUGS (1)
  1. LIDOCAINE [Suspect]
     Active Substance: LIDOCAINE
     Indication: Platelet dysfunction
     Route: 065

REACTIONS (14)
  - Restless legs syndrome [Unknown]
  - Hyperventilation [Unknown]
  - Tremor [Unknown]
  - Hyperhidrosis [Unknown]
  - Respiratory distress [Unknown]
  - Heart rate irregular [Unknown]
  - Tinnitus [Unknown]
  - Peripheral coldness [Unknown]
  - Speech disorder [Unknown]
  - Skin burning sensation [Unknown]
  - Dizziness [Unknown]
  - Muscle spasms [Unknown]
  - Throat tightness [Unknown]
  - Feeling abnormal [Unknown]

NARRATIVE: CASE EVENT DATE: 20090101
